FAERS Safety Report 8425630-1 (Version None)
Quarter: 2012Q2

REPORT INFORMATION
  Report Type: 
  Country: None (occurrence: None)
  Receive Date: 20120531
  Receipt Date: 20120521
  Transmission Date: 20120825
  Serious: Yes (Hospitalization)
  Sender: FDA-Public Use
  Company Number: 2012SP027758

PATIENT
  Sex: Male
  Weight: 1.59 kg

DRUGS (1)
  1. NEXPLANON [Suspect]
     Indication: MATERNAL EXPOSURE DURING PREGNANCY
     Dosage: ;TRPL
     Route: 064

REACTIONS (7)
  - PREGNANCY WITH IMPLANT CONTRACEPTIVE [None]
  - FOETAL GROWTH RESTRICTION [None]
  - HAEMORRHAGE IN PREGNANCY [None]
  - PLACENTAL DISORDER [None]
  - PLACENTAL INFARCTION [None]
  - PLACENTAL NECROSIS [None]
  - CAESAREAN SECTION [None]
